FAERS Safety Report 7870242 (Version 5)
Quarter: 2014Q1

REPORT INFORMATION
  Report Type: Spontaneous
  Country: US (occurrence: US)
  Receive Date: 20110324
  Receipt Date: 20140122
  Transmission Date: 20141002
  Serious: Yes (Other)
  Sender: FDA-Public Use
  Company Number: US-BAYER-2011-023435

PATIENT
  Age: 28 Year
  Sex: Female
  Weight: 74.83 kg

DRUGS (13)
  1. OCELLA [Suspect]
     Dosage: UNK
     Route: 048
     Dates: start: 20080424, end: 20100113
  2. YASMIN [Suspect]
     Dosage: UNK
     Dates: start: 20080424, end: 20080619
  3. PROTONIX [Concomitant]
     Route: 048
  4. WELLBUTRIN [Concomitant]
     Indication: DEPRESSION
     Dosage: UNK UNK, QD
     Route: 048
     Dates: start: 2009
  5. AMBIEN [Concomitant]
     Indication: SLEEP DISORDER
     Dosage: 10 MG, UNK
     Route: 048
     Dates: start: 2009
  6. ZOFRAN [Concomitant]
     Indication: NAUSEA
  7. IMODIUM [Concomitant]
     Indication: DIARRHOEA
  8. CARAFATE [Concomitant]
  9. DEXILANT [Concomitant]
  10. KLONOPIN [Concomitant]
  11. PROBIOTICS [Concomitant]
  12. QUESTRAN [Concomitant]
     Dosage: UNK UNK, HS
  13. PAMINE [Concomitant]
     Dosage: 2.5 MG EVERY 12 HOURS

REACTIONS (9)
  - Cholecystitis acute [None]
  - Gastritis [Not Recovered/Not Resolved]
  - Abdominal pain upper [Not Recovered/Not Resolved]
  - Nausea [Not Recovered/Not Resolved]
  - Vomiting [Not Recovered/Not Resolved]
  - Injury [None]
  - Depression [Not Recovered/Not Resolved]
  - Emotional distress [None]
  - Mental disorder [Not Recovered/Not Resolved]
